FAERS Safety Report 6230168-6 (Version None)
Quarter: 2009Q2

REPORT INFORMATION
  Report Type: 
  Country: None (occurrence: None)
  Receive Date: 20090615
  Receipt Date: 20090608
  Transmission Date: 20091009
  Serious: Yes (Hospitalization)
  Sender: FDA-Public Use
  Company Number: PHHO2009DE06432

PATIENT
  Sex: Male
  Weight: 88.2 kg

DRUGS (3)
  1. RAD 666 RAD+TAB [Suspect]
     Indication: RENAL TRANSPLANT
     Dosage: 1.25 MG, BID
     Route: 048
     Dates: start: 20060405, end: 20090519
  2. MYFORTIC [Concomitant]
     Indication: RENAL TRANSPLANT
     Dosage: 360 MG, UNK
     Route: 048
     Dates: start: 20050415
  3. URBASON [Concomitant]
     Indication: RENAL TRANSPLANT
     Dosage: 20 MG, UNK
     Route: 048

REACTIONS (5)
  - BLOOD CHOLESTEROL INCREASED [None]
  - BLOOD CREATININE INCREASED [None]
  - BLOOD LACTATE DEHYDROGENASE INCREASED [None]
  - BLOOD TRIGLYCERIDES INCREASED [None]
  - HEPATIC ENZYME INCREASED [None]
